FAERS Safety Report 15056728 (Version 1)
Quarter: 2018Q2

REPORT INFORMATION
  Report Type: Spontaneous
  Country: US (occurrence: US)
  Receive Date: 20180604
  Receipt Date: 20180604
  Transmission Date: 20180711
  Serious: No
  Sender: FDA-Public Use
  Company Number: None

PATIENT

DRUGS (1)
  1. PHENTERMINE. [Suspect]
     Active Substance: PHENTERMINE
     Route: 048

REACTIONS (9)
  - Myalgia [None]
  - Arthralgia [None]
  - Joint stiffness [None]
  - Feeling cold [None]
  - Peripheral coldness [None]
  - Eye pain [None]
  - Joint swelling [None]
  - Eye haemorrhage [None]
  - Headache [None]
